FAERS Safety Report 5661081-0 (Version None)
Quarter: 2008Q1

REPORT INFORMATION
  Report Type: 
  Country: None (occurrence: None)
  Receive Date: 20080304
  Receipt Date: 20080225
  Transmission Date: 20080703
  Serious: Yes (Other)
  Sender: FDA-Public Use
  Company Number: CHPA2008US03513

PATIENT
  Age: 3 Year
  Sex: Male
  Weight: 15 kg

DRUGS (2)
  1. TRIAMINIC COUGH + RUNNY NOSE (NCH)(DEXTROMETHORPHAN HYDROBROMIDE, CHLO [Suspect]
     Indication: COUGH
     Dosage: 1 TSP, BID, ORAL
     Route: 048
     Dates: start: 20080215, end: 20080223
  2. TRIAMINIC COUGH + SORE THROAT WITHOUT PSE (NCH)(DEXTROMETHORPHAN HYDRO [Suspect]
     Indication: NASOPHARYNGITIS
     Dosage: 1 TSP, BID, ORAL
     Route: 048
     Dates: start: 20080223

REACTIONS (3)
  - CONVULSION [None]
  - INCORRECT DOSE ADMINISTERED [None]
  - PYREXIA [None]
